FAERS Safety Report 6557178-3 (Version None)
Quarter: 2010Q1

REPORT INFORMATION
  Report Type: 
  Country: None (occurrence: None)
  Receive Date: 20100127
  Receipt Date: 20100127
  Transmission Date: 20100710
  Serious: Yes (Hospitalization)
  Sender: FDA-Public Use
  Company Number: None

PATIENT
  Sex: Female
  Weight: 63.2 kg

DRUGS (3)
  1. PEG-L-ASPARAGINASE (PEGASPARGADE, ONCOSPAR) [Suspect]
     Dosage: 4250 IU
     Dates: start: 20090522
  2. VINCRISTINE SULFATE [Suspect]
     Dosage: 2 MG
     Dates: start: 20090521
  3. METHOTREXATE [Suspect]
     Dosage: 185 MG
     Dates: start: 20090521

REACTIONS (2)
  - BLOOD GLUCOSE INCREASED [None]
  - PANCREATITIS [None]
